FAERS Safety Report 20656424 (Version 1)
Quarter: 2022Q1

REPORT INFORMATION
  Report Type: Report from Study
  Country: CA (occurrence: CA)
  Receive Date: 20220331
  Receipt Date: 20220331
  Transmission Date: 20220423
  Serious: Yes (Hospitalization)
  Sender: FDA-Public Use
  Company Number: CA-AMGEN-CANSL2022054531

PATIENT
  Age: 53 Year
  Sex: Male

DRUGS (1)
  1. AVSOLA [Suspect]
     Active Substance: INFLIXIMAB-AXXQ
     Indication: Ankylosing spondylitis
     Dosage: 5 MILLIGRAM/KG, Q8WK
     Route: 065
     Dates: start: 20211221, end: 20220325

REACTIONS (4)
  - Joint effusion [Unknown]
  - Nausea [Unknown]
  - Rash [Unknown]
  - Myalgia [Unknown]
